FAERS Safety Report 10243960 (Version 2)
Quarter: 2014Q3

REPORT INFORMATION
  Report Type: Spontaneous
  Country: US (occurrence: None)
  Receive Date: 20140616
  Receipt Date: 20140716
  Transmission Date: 20150326
  Serious: Yes (Other)
  Sender: FDA-Public Use
  Company Number: 2014-US-006715

PATIENT
  Age: 28 Year
  Sex: Female
  Weight: 76.2 kg

DRUGS (8)
  1. TOPAMAX [Concomitant]
     Active Substance: TOPIRAMATE
  2. YASMIN (DROSPIRENONE, ETHINYLESTRADIOL) [Concomitant]
  3. HYDROCHLOROTHIAZIDE (HYDROCHLOROTHLAZIDE) [Concomitant]
  4. LEXAPRO [Concomitant]
     Active Substance: ESCITALOPRAM OXALATE
  5. PENICILLIN (BENZYLPENICILLIN POTASSIUM) [Suspect]
     Active Substance: PENICILLIN
     Indication: SINUSITIS
     Dates: start: 201405, end: 201405
  6. XYREM [Suspect]
     Active Substance: SODIUM OXYBATE
     Indication: NARCOLEPSY
     Route: 048
     Dates: start: 201309, end: 2013
  7. KEFLEX [Suspect]
     Active Substance: CEPHALEXIN
     Indication: TOOTH ABSCESS
     Dates: start: 201404, end: 2014
  8. SYNTHROID [Concomitant]
     Active Substance: LEVOTHYROXINE SODIUM

REACTIONS (6)
  - Tooth abscess [None]
  - Drug hypersensitivity [None]
  - Sinusitis [None]
  - Endodontic procedure [None]
  - Throat tightness [None]
  - Angioedema [None]

NARRATIVE: CASE EVENT DATE: 201404
